FAERS Safety Report 7769471-7 (Version None)
Quarter: 2011Q3

REPORT INFORMATION
  Report Type: 
  Country: None (occurrence: None)
  Receive Date: 20110922
  Receipt Date: 20110720
  Transmission Date: 20111222
  Serious: No
  Sender: FDA-Public Use
  Company Number: US-ASTRAZENECA-2011SE15838

PATIENT
  Age: 57 Year
  Sex: Female
  Weight: 59.9 kg

DRUGS (11)
  1. ZOLOFT [Concomitant]
     Indication: BIPOLAR DISORDER
  2. DOXYCYCLINE [Concomitant]
     Indication: ACNE
  3. LOVAZA [Concomitant]
     Indication: HYPERCHOLESTEROLAEMIA
  4. SEROQUEL [Suspect]
     Route: 048
     Dates: start: 20110101
  5. LIPOIC ACID [Concomitant]
     Indication: NUTRITIONAL SUPPORT
  6. SEROQUEL [Suspect]
     Route: 048
     Dates: start: 20100601, end: 20110101
  7. THYROXIN [Concomitant]
     Indication: THYROID DISORDER
  8. VITAMIN PILL [Concomitant]
     Indication: NUTRITIONAL SUPPORT
  9. VITAMIN D [Concomitant]
     Indication: NUTRITIONAL SUPPORT
  10. CHOLESTREOL MEDICATION [Concomitant]
     Indication: HYPERCHOLESTEROLAEMIA
  11. SEROQUEL [Suspect]
     Indication: BIPOLAR I DISORDER
     Route: 048
     Dates: start: 20100601, end: 20110101

REACTIONS (6)
  - MOTION SICKNESS [None]
  - CRYING [None]
  - BLOOD CHOLESTEROL INCREASED [None]
  - WEIGHT INCREASED [None]
  - SOMNOLENCE [None]
  - DIZZINESS [None]
